FAERS Safety Report 16787511 (Version 3)
Quarter: 2019Q4

REPORT INFORMATION
  Report Type: Spontaneous
  Country: US (occurrence: US)
  Receive Date: 20190909
  Receipt Date: 20191016
  Transmission Date: 20200122
  Serious: Yes (Hospitalization, Other)
  Sender: FDA-Public Use
  Company Number: US-CATALYST PHARMACEUTICALS, INC-2019CAT00371

PATIENT
  Age: 88 Year
  Sex: Male
  Weight: 77.1 kg

DRUGS (15)
  1. REGLAN [Suspect]
     Active Substance: METOCLOPRAMIDE HYDROCHLORIDE
     Dosage: UNK
     Dates: start: 20190404, end: 201904
  2. LOW DOSE ASA EC [Concomitant]
     Dosage: 81 MG, 1X/DAY
     Route: 048
  3. FIRDAPSE [Suspect]
     Active Substance: AMIFAMPRIDINE
     Dosage: 5 MG, 2X/DAY (TITRATING PHASE)
     Route: 048
     Dates: start: 201908, end: 201908
  4. FIRDAPSE [Suspect]
     Active Substance: AMIFAMPRIDINE
     Dosage: 5 MG, 3X/DAY
     Route: 048
     Dates: start: 20190824, end: 201909
  5. MULTIVITAMIN [Concomitant]
     Active Substance: VITAMINS
     Dosage: 1 TABLETS, 1X/DAY
     Route: 048
  6. FIRDAPSE [Suspect]
     Active Substance: AMIFAMPRIDINE
     Indication: MYASTHENIC SYNDROME
     Dosage: 5 MG, 1X/DAY
     Route: 048
     Dates: start: 201908, end: 201908
  7. FERROUS SULFATE. [Concomitant]
     Active Substance: FERROUS SULFATE
     Dosage: 325 MG, 1X/DAY
  8. POTASSIUM CHLORIDE. [Concomitant]
     Active Substance: POTASSIUM CHLORIDE
     Dosage: 20 MEQ, 1X/DAY
     Route: 048
  9. DIGOXIN. [Concomitant]
     Active Substance: DIGOXIN
     Dosage: 0.125 MG, 1X/DAY
     Route: 048
  10. HYDROCHLOROTHIAZIDE. [Concomitant]
     Active Substance: HYDROCHLOROTHIAZIDE
     Dosage: 25 MG, 1X/DAY
     Route: 048
  11. METOPROLOL TARTRATE. [Concomitant]
     Active Substance: METOPROLOL TARTRATE
     Dosage: 25 MG, 2X/DAY
     Route: 048
  12. ONDANSETRON ODT [Concomitant]
     Active Substance: ONDANSETRON
     Dosage: 4 MG, AS NEEDED EVERY 4 HOURS
     Route: 048
  13. INTRAVENOUS CONTRAST [Suspect]
     Active Substance: UNSPECIFIED INGREDIENT
     Dosage: UNK
     Dates: start: 20190821, end: 20190821
  14. ACETAMINOPHEN. [Concomitant]
     Active Substance: ACETAMINOPHEN
     Dosage: 650 MG, AS NEEDED EVERY 8 HOURS
  15. PRAMIPEXOLE. [Concomitant]
     Active Substance: PRAMIPEXOLE
     Dosage: 0.5 MG, 3X/DAY
     Route: 048

REACTIONS (29)
  - Wound [Not Recovered/Not Resolved]
  - Atrioventricular block first degree [Unknown]
  - Prostatomegaly [Not Recovered/Not Resolved]
  - Pericardial effusion [Unknown]
  - Thrombosis [Recovered/Resolved]
  - Erosive oesophagitis [Recovering/Resolving]
  - Chills [Recovered/Resolved]
  - Dysuria [Unknown]
  - Cholelithiasis [Not Recovered/Not Resolved]
  - Pyrexia [Recovered/Resolved]
  - Tachycardia [Unknown]
  - Pollakiuria [Unknown]
  - Neuropathy peripheral [Unknown]
  - Nausea [Unknown]
  - Hiatus hernia [Unknown]
  - Chest X-ray abnormal [Unknown]
  - Diarrhoea [Unknown]
  - Infusion site extravasation [Recovering/Resolving]
  - Hypertension [Not Recovered/Not Resolved]
  - Decreased appetite [Unknown]
  - Haematoma [Recovering/Resolving]
  - Oesophageal dilatation [Recovering/Resolving]
  - Gastrooesophageal reflux disease [Recovering/Resolving]
  - Dyspnoea [Recovered/Resolved]
  - Nephrolithiasis [Not Recovered/Not Resolved]
  - Pleural effusion [Unknown]
  - Systemic inflammatory response syndrome [Unknown]
  - Atelectasis [Unknown]
  - Constipation [Unknown]

NARRATIVE: CASE EVENT DATE: 2019
